FAERS Safety Report 8193032-1 (Version None)
Quarter: 2012Q1

REPORT INFORMATION
  Report Type: 
  Country: None (occurrence: None)
  Receive Date: 20120308
  Receipt Date: 20120227
  Transmission Date: 20120608
  Serious: Yes (Other)
  Sender: FDA-Public Use
  Company Number: DE-JNJFOC-20120112581

PATIENT
  Age: 3 Year
  Sex: Female
  Weight: 13.8 kg

DRUGS (5)
  1. REMICADE [Suspect]
     Indication: CROHN'S DISEASE
     Route: 042
  2. MESALAMINE [Concomitant]
     Indication: CROHN'S DISEASE
     Route: 065
  3. REMICADE [Suspect]
     Dosage: 2ND INFUSION
     Route: 042
     Dates: start: 20120123, end: 20120123
  4. AZATHIOPRINE [Concomitant]
     Indication: CROHN'S DISEASE
     Route: 065
  5. PREDNISOLONE [Concomitant]
     Indication: PREMEDICATION
     Route: 065

REACTIONS (3)
  - PRURITUS GENERALISED [None]
  - FACE OEDEMA [None]
  - URTICARIA [None]
